FAERS Safety Report 4327870-X (Version None)
Quarter: 2004Q1

REPORT INFORMATION
  Report Type: 
  Country: None (occurrence: None)
  Receive Date: 20040330
  Receipt Date: 20040315
  Transmission Date: 20041129
  Serious: Yes (Other)
  Sender: FDA-Public Use
  Company Number: 000256

PATIENT
  Age: 46 Year
  Sex: Male

DRUGS (1)
  1. FLUOXETINE [Suspect]

REACTIONS (5)
  - AGGRESSION [None]
  - ANXIETY [None]
  - LOSS OF CONSCIOUSNESS [None]
  - MENTAL DISORDER [None]
  - MURDER [None]
